FAERS Safety Report 21983385 (Version 1)
Quarter: 2023Q1

REPORT INFORMATION
  Report Type: Spontaneous
  Country: US (occurrence: US)
  Receive Date: 20230213
  Receipt Date: 20230213
  Transmission Date: 20230418
  Serious: No
  Sender: FDA-Public Use
  Company Number: US-OTSUKA-2022_033686

PATIENT
  Age: 14 Year

DRUGS (2)
  1. BUSULFAN [Suspect]
     Active Substance: BUSULFAN
     Indication: Chronic leukaemia
     Dosage: UNK
     Route: 065
  2. CYCLOPHOSPHAMIDE [Concomitant]
     Active Substance: CYCLOPHOSPHAMIDE
     Indication: Chronic leukaemia
     Dosage: UNK
     Route: 065

REACTIONS (1)
  - Product use in unapproved indication [Unknown]
